FAERS Safety Report 25456330 (Version 2)
Quarter: 2025Q3

REPORT INFORMATION
  Report Type: Spontaneous
  Country: US (occurrence: US)
  Receive Date: 20250619
  Receipt Date: 20250704
  Transmission Date: 20251021
  Serious: Yes (Other)
  Sender: ARDELYX
  Company Number: US-ARDELYX-2025ARDX004445

PATIENT
  Sex: Female
  Weight: 48.98 kg

DRUGS (1)
  1. IBSRELA [Suspect]
     Active Substance: TENAPANOR HYDROCHLORIDE
     Indication: Constipation
     Route: 048

REACTIONS (8)
  - Intestinal obstruction [Recovered/Resolved]
  - Vomiting [Recovering/Resolving]
  - Illness [Recovering/Resolving]
  - General physical health deterioration [Recovering/Resolving]
  - Feeding disorder [Recovering/Resolving]
  - Asthenia [Recovering/Resolving]
  - Body height decreased [Recovering/Resolving]
  - Product use in unapproved indication [Unknown]
